FAERS Safety Report 5953529-9 (Version None)
Quarter: 2008Q4

REPORT INFORMATION
  Report Type: 
  Country: None (occurrence: None)
  Receive Date: 20081114
  Receipt Date: 20081111
  Transmission Date: 20090506
  Serious: Yes (Death, Other)
  Sender: FDA-Public Use
  Company Number: PHBS2008KR06209

PATIENT
  Age: 57 Year
  Sex: Male

DRUGS (3)
  1. OCTREOTIDE ACETATE [Suspect]
     Indication: SMALL CELL CARCINOMA
  2. OCTREOTIDE ACETATE [Suspect]
     Indication: PANCREATIC CARCINOMA METASTATIC
  3. GEMCITABINE HCL [Suspect]
     Indication: SMALL CELL CARCINOMA

REACTIONS (5)
  - ABDOMINAL DISTENSION [None]
  - ABDOMINAL PAIN [None]
  - DRUG INEFFECTIVE [None]
  - MALIGNANT NEOPLASM PROGRESSION [None]
  - PULMONARY EMBOLISM [None]
